FAERS Safety Report 7451516-5 (Version None)
Quarter: 2011Q2

REPORT INFORMATION
  Report Type: 
  Country: None (occurrence: None)
  Receive Date: 20110502
  Receipt Date: 20110419
  Transmission Date: 20111010
  Serious: Yes (Hospitalization)
  Sender: FDA-Public Use
  Company Number: GB-JNJFOC-20100805509

PATIENT
  Age: 43 Year
  Sex: Female
  Weight: 93 kg

DRUGS (14)
  1. ZOLPIDEM [Concomitant]
  2. SLOZEM [Concomitant]
  3. ALBUTEROL SULFATE AUTOHALER [Concomitant]
  4. INFLIXIMAB, RECOMBINANT [Suspect]
     Indication: RHEUMATOID ARTHRITIS
     Route: 042
  5. AMITRIPTYLINE [Concomitant]
  6. METHOTREXATE [Concomitant]
  7. SERETIDE [Concomitant]
     Route: 055
  8. PREDNISOLONE [Concomitant]
  9. DICLOFENAC [Concomitant]
     Dosage: 1-2 THREE TIMES A DAY
  10. OXYCODONE [Concomitant]
  11. FOLIC ACID [Concomitant]
     Dosage: EXCEPT ON DAY OF METHOTREXATE
  12. ACETAMINOPHEN [Concomitant]
     Dosage: AS NEEDED
  13. OXYCODONE [Concomitant]
  14. OMEPRAZOLE [Concomitant]

REACTIONS (1)
  - RHEUMATOID ARTHRITIS [None]
